FAERS Safety Report 5271558-8 (Version None)
Quarter: 2007Q1

REPORT INFORMATION
  Report Type: 
  Country: None (occurrence: None)
  Receive Date: 20070316
  Receipt Date: 20070307
  Transmission Date: 20070707
  Serious: Yes (Life-Threatening, Hospitalization, Other)
  Sender: FDA-Public Use
  Company Number: SPV1-2007-00025

PATIENT
  Age: 57 Year
  Sex: Male
  Weight: 81.6 kg

DRUGS (12)
  1. PENTASA [Suspect]
     Indication: CROHN'S DISEASE
     Dosage: 500 MG, 2 CAP 2XS DAILY
     Dates: start: 20061101, end: 20061201
  2. PRILOSEC  /00661201/ (OMEPRAZOLE) [Concomitant]
  3. DIOVAN HCT [Concomitant]
  4. ZOCOR [Concomitant]
  5. PAXIL [Concomitant]
  6. FOLTX /01079901/ (CYANOCOBALAMIN, FOLIC ACID, PYRIDOXINE HYDROCHLORIDE [Concomitant]
  7. NORVASC /00972401/ (AMLODIPINE) [Concomitant]
  8. MIRALAX [Concomitant]
  9. WELLBUTRIN XL [Concomitant]
  10. ASPIRIN CHILDREN (ACETYLSALICYLIC ACID) [Concomitant]
  11. VITAMIN C /00008001/ (ASCORBIC ACID) [Concomitant]
  12. TORADOL [Concomitant]

REACTIONS (13)
  - ACUTE RESPIRATORY FAILURE [None]
  - ALVEOLITIS ALLERGIC [None]
  - ANAEMIA [None]
  - BACK PAIN [None]
  - BLOOD PRESSURE DECREASED [None]
  - CHEST PAIN [None]
  - DRUG ADMINISTRATION ERROR [None]
  - HEADACHE [None]
  - MUSCULOSKELETAL STIFFNESS [None]
  - NECK PAIN [None]
  - PNEUMONITIS [None]
  - RASH [None]
  - SEPSIS SYNDROME [None]
